FAERS Safety Report 10023282 (Version 1)
Quarter: 2014Q1

REPORT INFORMATION
  Report Type: Spontaneous
  Country: US (occurrence: US)
  Receive Date: 20140320
  Receipt Date: 20140320
  Transmission Date: 20141002
  Serious: No
  Sender: FDA-Public Use
  Company Number: US-BIOGENIDEC-2014BI022111

PATIENT
  Sex: Female

DRUGS (2)
  1. AVONEX [Suspect]
     Indication: MULTIPLE SCLEROSIS
     Route: 030
     Dates: start: 20130201
  2. AVONEX [Suspect]
     Indication: MULTIPLE SCLEROSIS
     Route: 030
     Dates: start: 20130621, end: 20140201

REACTIONS (6)
  - Skin lesion [Unknown]
  - Weight increased [Unknown]
  - Multiple sclerosis relapse [Unknown]
  - Blindness [Not Recovered/Not Resolved]
  - Central nervous system lesion [Unknown]
  - Multiple sclerosis [Unknown]
